FAERS Safety Report 7912144-8 (Version None)
Quarter: 2011Q4

REPORT INFORMATION
  Report Type: 
  Country: None (occurrence: None)
  Receive Date: 20111114
  Receipt Date: 20111113
  Transmission Date: 20120403
  Serious: Yes (Other)
  Sender: FDA-Public Use
  Company Number: US-PFIZER INC-2011277635

PATIENT
  Sex: Female

DRUGS (1)
  1. CHANTIX [Suspect]
     Dosage: UNK
     Route: 048
     Dates: start: 20111101

REACTIONS (5)
  - POOR QUALITY SLEEP [None]
  - FEELING ABNORMAL [None]
  - PSYCHOMOTOR RETARDATION [None]
  - DEPRESSED MOOD [None]
  - NAUSEA [None]
